FAERS Safety Report 8970539 (Version 1)
Quarter: 2012Q4

REPORT INFORMATION
  Report Type: Report from Study
  Country: FR (occurrence: FR)
  Receive Date: 20121218
  Receipt Date: 20121218
  Transmission Date: 20130627
  Serious: Yes (Hospitalization, Other)
  Sender: FDA-Public Use
  Company Number: FR-BAYER-2012-130176

PATIENT

DRUGS (4)
  1. BETAFERON [Suspect]
     Dosage: 250 ?g, QOD
  2. MANTADIX [Concomitant]
     Indication: ASTHENIA
     Dosage: 1 DF, QD
     Dates: start: 20080328, end: 201109
  3. COLOFOAM [Concomitant]
     Indication: COLITIS ULCERATIVE
     Dosage: UNK
     Route: 048
     Dates: start: 2004
  4. PENTASA [Concomitant]
     Indication: COLITIS ULCERATIVE
     Dosage: 3 g, QD
     Route: 048
     Dates: start: 20110325

REACTIONS (1)
  - Colitis ulcerative [Not Recovered/Not Resolved]
